FAERS Safety Report 5165059-5 (Version None)
Quarter: 2006Q4

REPORT INFORMATION
  Report Type: 
  Country: None (occurrence: None)
  Receive Date: 20061124
  Receipt Date: 20061113
  Transmission Date: 20070319
  Serious: Yes (Other)
  Sender: FDA-Public Use
  Company Number: 2006107932

PATIENT
  Age: 67 Year
  Sex: Female

DRUGS (2)
  1. TOLTERODINE TARTRATE [Suspect]
     Dosage: 4 MG (2 MG, 2 IN 1 D), ORAL
     Route: 048
     Dates: start: 20060801
  2. PRONON (PROPAFENONE HYDROCHLORIDE) [Concomitant]

REACTIONS (3)
  - AMNESIA [None]
  - ARRHYTHMIA [None]
  - HEADACHE [None]
